FAERS Safety Report 4303044-3 (Version None)
Quarter: 2004Q1

REPORT INFORMATION
  Report Type: 
  Country: None (occurrence: None)
  Receive Date: 20040224
  Receipt Date: 20040210
  Transmission Date: 20041129
  Serious: Yes (Life-Threatening, Hospitalization)
  Sender: FDA-Public Use
  Company Number: WAES 0402GBR00114

PATIENT
  Age: 77 Year
  Sex: Male

DRUGS (6)
  1. CLOPIDOGREL BISULFATE [Suspect]
     Indication: AGE INDETERMINATE MYOCARDIAL INFARCTION
     Route: 048
     Dates: end: 20040119
  2. FUROSEMIDE [Concomitant]
     Indication: MYOCARDIAL INFARCTION
     Route: 048
  3. OMEPRAZOLE [Concomitant]
     Indication: GASTROINTESTINAL HAEMORRHAGE
     Route: 048
     Dates: start: 19940101, end: 20040105
  4. RAMIPRIL [Concomitant]
     Indication: MYOCARDIAL INFARCTION
     Route: 048
  5. VIOXX [Suspect]
     Indication: ARTHRITIS
     Route: 048
     Dates: end: 20040119
  6. MEDICINALPRODUCT NOT SPECIFIED BY SENDER [Concomitant]
     Indication: ACROMEGALY
     Route: 030

REACTIONS (3)
  - GASTRITIS [None]
  - GASTROINTESTINAL HAEMORRHAGE [None]
  - HAEMATEMESIS [None]
